FAERS Safety Report 7278578-2 (Version None)
Quarter: 2011Q1

REPORT INFORMATION
  Report Type: 
  Country: None (occurrence: None)
  Receive Date: 20110207
  Receipt Date: 20110131
  Transmission Date: 20110831
  Serious: Yes (Death)
  Sender: FDA-Public Use
  Company Number: CHPA2011US01818

PATIENT
  Age: 27 Year
  Sex: Male

DRUGS (6)
  1. TRICYCLIC ANTIDEPRESSANTS [Suspect]
     Route: 048
  2. IBUPROFEN [Suspect]
     Route: 048
  3. DIPHENHYDRAMINE [Suspect]
     Route: 048
  4. MORPHINE [Suspect]
     Route: 048
  5. ACETAMINOPHEN [Suspect]
     Route: 048
  6. OXYCODONE HCL [Suspect]
     Route: 048

REACTIONS (1)
  - DRUG ABUSE [None]
